FAERS Safety Report 12751815 (Version 1)
Quarter: 2016Q3

REPORT INFORMATION
  Report Type: Spontaneous
  Country: IE (occurrence: IE)
  Receive Date: 20160915
  Receipt Date: 20160915
  Transmission Date: 20161109
  Serious: No
  Sender: FDA-Public Use
  Company Number: IE-JAZZ-2016-IE-005641

PATIENT
  Age: 15 Year
  Sex: Male

DRUGS (1)
  1. ERWINASE [Suspect]
     Active Substance: ASPARAGINASE ERWINIA CHRYSANTHEMI
     Indication: PRODUCT USED FOR UNKNOWN INDICATION
     Dosage: 32000 IU, UNK
     Route: 030

REACTIONS (3)
  - Anxiety [Unknown]
  - Fear [Unknown]
  - Medication error [Unknown]

NARRATIVE: CASE EVENT DATE: 201603
